FAERS Safety Report 5480474-8 (Version None)
Quarter: 2007Q4

REPORT INFORMATION
  Report Type: 
  Country: None (occurrence: None)
  Receive Date: 20071009
  Receipt Date: 20070927
  Transmission Date: 20080405
  Serious: Yes (Hospitalization, Other)
  Sender: FDA-Public Use
  Company Number: JP-BRISTOL-MYERS SQUIBB COMPANY-13872551

PATIENT
  Age: 82 Year
  Sex: Female

DRUGS (4)
  1. GATIFLOXACIN [Suspect]
     Indication: BRONCHITIS
     Route: 048
     Dates: start: 20070725, end: 20070727
  2. PL [Suspect]
     Indication: BRONCHITIS
     Route: 048
     Dates: start: 20070725, end: 20070727
  3. BAKUMONDO-TO [Concomitant]
     Route: 048
     Dates: start: 20070725, end: 20070727
  4. KAKKON-TO EXTRACT [Concomitant]
     Route: 048
     Dates: start: 20070725, end: 20070727

REACTIONS (3)
  - CONVULSION [None]
  - HYPOGLYCAEMIA [None]
  - LOSS OF CONSCIOUSNESS [None]
